FAERS Safety Report 24435236 (Version 3)
Quarter: 2024Q4

REPORT INFORMATION
  Report Type: Report from Study
  Country: TW (occurrence: TW)
  Receive Date: 20241015
  Receipt Date: 20241105
  Transmission Date: 20250115
  Serious: Yes (Death, Hospitalization)
  Sender: ABBVIE
  Company Number: TW-ABBVIE-5962055

PATIENT
  Age: 70 Year
  Sex: Female
  Weight: 45 kg

DRUGS (4)
  1. UPADACITINIB [Suspect]
     Active Substance: UPADACITINIB
     Indication: Rheumatoid arthritis
     Route: 048
     Dates: start: 20240105, end: 20240921
  2. MOBIC [Concomitant]
     Active Substance: MELOXICAM
     Indication: Rheumatoid arthritis
     Dosage: 7.5MG
     Route: 048
     Dates: start: 20230331, end: 20240921
  3. METHOTREXATE SODIUM [Concomitant]
     Active Substance: METHOTREXATE SODIUM
     Indication: Rheumatoid arthritis
     Dosage: 7.5MG
     Route: 048
     Dates: start: 20230331, end: 20240921
  4. PREDNISOLONE [Concomitant]
     Active Substance: PREDNISOLONE
     Indication: Rheumatoid arthritis
     Dosage: 5MG
     Route: 048
     Dates: start: 20230331, end: 20240921

REACTIONS (4)
  - Pulmonary oedema [Fatal]
  - Decreased appetite [Fatal]
  - Sepsis [Fatal]
  - Asthenia [Fatal]

NARRATIVE: CASE EVENT DATE: 20240922
